FAERS Safety Report 11642986 (Version 1)
Quarter: 2015Q4

REPORT INFORMATION
  Report Type: Report from Study
  Country: BR (occurrence: BR)
  Receive Date: 20151020
  Receipt Date: 20151020
  Transmission Date: 20160304
  Serious: Yes (Death, Hospitalization)
  Sender: FDA-Public Use
  Company Number: PHHY2015BR134931

PATIENT
  Age: 91 Year
  Sex: Female
  Weight: 64 kg

DRUGS (1)
  1. EXELON PATCH [Suspect]
     Active Substance: RIVASTIGMINE
     Indication: CONFUSIONAL STATE
     Dosage: 1 DF, QD
     Route: 065
     Dates: start: 2014, end: 201502

REACTIONS (1)
  - Death [Fatal]
